FAERS Safety Report 14662354 (Version 4)
Quarter: 2018Q2

REPORT INFORMATION
  Report Type: Spontaneous
  Country: US (occurrence: US)
  Receive Date: 20180321
  Receipt Date: 20180530
  Transmission Date: 20180711
  Serious: Yes (Hospitalization)
  Sender: FDA-Public Use
  Company Number: US-BIOGEN-2018BI00544388

PATIENT
  Age: 69 Year
  Sex: Female

DRUGS (1)
  1. TYSABRI [Suspect]
     Active Substance: NATALIZUMAB
     Indication: MULTIPLE SCLEROSIS
     Route: 042
     Dates: start: 20070307

REACTIONS (17)
  - General physical health deterioration [Recovered/Resolved]
  - Fear of eating [Recovered/Resolved with Sequelae]
  - Urosepsis [Recovered/Resolved]
  - Decubitus ulcer [Not Recovered/Not Resolved]
  - Limb injury [Recovered/Resolved with Sequelae]
  - Catheter placement [Unknown]
  - Scar [Recovered/Resolved with Sequelae]
  - Infection [Recovered/Resolved]
  - Chest discomfort [Recovered/Resolved with Sequelae]
  - Pneumonia aspiration [Recovered/Resolved]
  - Wound [Recovered/Resolved with Sequelae]
  - Wound secretion [Not Recovered/Not Resolved]
  - Asthenia [Recovered/Resolved]
  - Weight decreased [Not Recovered/Not Resolved]
  - Dysphagia [Recovered/Resolved with Sequelae]
  - Skin fissures [Not Recovered/Not Resolved]
  - Pyrexia [Recovered/Resolved]

NARRATIVE: CASE EVENT DATE: 20170912
